FAERS Safety Report 17353466 (Version 2)
Quarter: 2020Q1

REPORT INFORMATION
  Report Type: Spontaneous
  Country: US (occurrence: US)
  Receive Date: 20200131
  Receipt Date: 20200218
  Transmission Date: 20200409
  Serious: No
  Sender: FDA-Public Use
  Company Number: US-BIOGEN-2020BI00829877

PATIENT
  Sex: Female

DRUGS (2)
  1. TECFIDERA [Suspect]
     Active Substance: DIMETHYL FUMARATE
     Indication: MULTIPLE SCLEROSIS
     Dosage: TECFIDERA 120MG BY MOUTH TWICE DAILY FOR 7 DAYS [BEGAN 01/13/2020], THEN 240MG TWICE DAILY [BEGAN...
     Route: 048
     Dates: start: 20200113
  2. TECFIDERA [Suspect]
     Active Substance: DIMETHYL FUMARATE
     Dosage: TECFIDERA 120MG BY MOUTH TWICE DAILY FOR 7 DAYS [BEGAN 01/13/2020], THEN 240MG TWICE DAILY [BEGAN...
     Route: 048
     Dates: start: 20200120

REACTIONS (16)
  - Nausea [Unknown]
  - Abdominal distension [Unknown]
  - Flatulence [Unknown]
  - Cough [Not Recovered/Not Resolved]
  - Headache [Unknown]
  - Malaise [Unknown]
  - Abdominal pain upper [Unknown]
  - Dyspepsia [Unknown]
  - Abdominal discomfort [Unknown]
  - Menstruation delayed [Unknown]
  - Vomiting [Unknown]
  - Diarrhoea [Unknown]
  - Flushing [Unknown]
  - Product dose omission [Unknown]
  - Upper respiratory tract congestion [Unknown]
  - Multiple sclerosis relapse [Unknown]
